FAERS Safety Report 10525845 (Version 3)
Quarter: 2014Q4

REPORT INFORMATION
  Report Type: Report from Study
  Country: MX (occurrence: MX)
  Receive Date: 20141017
  Receipt Date: 20141027
  Transmission Date: 20150528
  Serious: Yes (Hospitalization, Other)
  Sender: FDA-Public Use
  Company Number: PHHY2014MX135453

PATIENT
  Age: 81 Year
  Sex: Female

DRUGS (3)
  1. CALCIUM [Concomitant]
     Active Substance: CALCIUM
     Indication: OSTEOPOROSIS
     Dosage: 1 DF, QD (DAILY)
     Route: 065
     Dates: start: 201404
  2. EVIPRESS [Concomitant]
     Indication: HYPERTENSION
     Dosage: 0.5 DF, QD
     Route: 048
     Dates: start: 2013
  3. CO-DIOVAN [Suspect]
     Active Substance: HYDROCHLOROTHIAZIDE\VALSARTAN
     Indication: HYPERTENSION
     Dosage: 0.5 DF (320/25 MG), QD
     Route: 048
     Dates: start: 2013

REACTIONS (7)
  - Drug prescribing error [Not Recovered/Not Resolved]
  - Wrong technique in drug usage process [Not Recovered/Not Resolved]
  - Fall [Recovering/Resolving]
  - Accident [Unknown]
  - Femur fracture [Recovering/Resolving]
  - Balance disorder [Unknown]
  - Procedural complication [Unknown]

NARRATIVE: CASE EVENT DATE: 2013
